FAERS Safety Report 12992870 (Version 1)
Quarter: 2016Q4

REPORT INFORMATION
  Report Type: Report from Study
  Country: US (occurrence: US)
  Receive Date: 20161202
  Receipt Date: 20161202
  Transmission Date: 20170207
  Serious: Yes (Hospitalization, Other)
  Sender: FDA-Public Use
  Company Number: US-BIOGEN-2015BI013880

PATIENT
  Age: 24 Year
  Sex: Female

DRUGS (1)
  1. TYSABRI [Suspect]
     Active Substance: NATALIZUMAB
     Indication: MULTIPLE SCLEROSIS
     Route: 042
     Dates: start: 20141217

REACTIONS (4)
  - Pulmonary embolism [Recovered/Resolved]
  - Neoplasm malignant [Unknown]
  - Ovarian neoplasm [Recovered/Resolved]
  - Uterine neoplasm [Unknown]

NARRATIVE: CASE EVENT DATE: 201501
